FAERS Safety Report 5630455-6 (Version None)
Quarter: 2008Q1

REPORT INFORMATION
  Report Type: 
  Country: None (occurrence: None)
  Receive Date: 20080219
  Receipt Date: 20080208
  Transmission Date: 20080703
  Serious: Yes (Hospitalization)
  Sender: FDA-Public Use
  Company Number: US-ROCHE-546386

PATIENT
  Age: 85 Year
  Sex: Female

DRUGS (7)
  1. ROCEPHIN [Suspect]
     Route: 042
     Dates: start: 20070915
  2. CENTRUM SILVER [Concomitant]
  3. TORSEMIDE [Concomitant]
  4. DIGITEK [Concomitant]
  5. SPIROLACTONE [Concomitant]
  6. LIPITOR [Concomitant]
     Dosage: THE PATIENT WAS TAKING LIPITOR 40 MG AT BEDTIME ALTERNATING WITH 20 MG OF LIPITOR.
  7. ACTOS [Concomitant]

REACTIONS (2)
  - ENDOCARDITIS [None]
  - RASH [None]
